FAERS Safety Report 9094965 (Version 1)
Quarter: 2013Q3

REPORT INFORMATION
  Report Type: Spontaneous
  Country: US (occurrence: None)
  Receive Date: 20130214
  Receipt Date: 20130214
  Transmission Date: 20140515
  Serious: Yes (Hospitalization)
  Sender: FDA-Public Use
  Company Number: None

PATIENT
  Age: 55 Year
  Sex: Female

DRUGS (11)
  1. CARFILZOMIB [Suspect]
     Indication: WALDENSTROM^S MACROGLOBULINAEMIA
     Route: 042
     Dates: start: 20121210, end: 20130129
  2. RITUXIMAB [Suspect]
     Indication: WALDENSTROM^S MACROGLOBULINAEMIA
     Route: 042
     Dates: start: 20121210, end: 20130129
  3. ACYCLOVIR [Concomitant]
  4. GUAIFENESIN [Concomitant]
  5. LEVOTHYROXINE SODIUM [Concomitant]
  6. LORAZEPAM [Concomitant]
  7. PEPCID (FAMOTIDINE) [Concomitant]
  8. PREDNISONE [Concomitant]
  9. PROZAC (FLUOXETINE HCL) [Concomitant]
  10. WELLBUTRIN (BUPROPION HCL) [Concomitant]
  11. DEXAMETHASONE [Suspect]
     Indication: WALDENSTROM^S MACROGLOBULINAEMIA
     Route: 042
     Dates: start: 20121210, end: 20130129

REACTIONS (4)
  - Cough [None]
  - Dyspnoea [None]
  - Blood culture positive [None]
  - Haemophilus infection [None]
